FAERS Safety Report 18377451 (Version 2)
Quarter: 2020Q4

REPORT INFORMATION
  Report Type: Spontaneous
  Country: US (occurrence: US)
  Receive Date: 20201013
  Receipt Date: 20201118
  Transmission Date: 20210114
  Serious: No
  Sender: FDA-Public Use
  Company Number: US-PFIZER INC-2020393568

PATIENT
  Age: 73 Year
  Sex: Female
  Weight: 63.95 kg

DRUGS (2)
  1. GABAPENTIN. [Suspect]
     Active Substance: GABAPENTIN
     Indication: PAIN
     Dosage: 1800 MG, DAILY (600 MG IN THE MORNING, 300 MG IN THE AFTERNOON, AND 900 MG AT NIGHT)
     Route: 048
  2. GABAPENTIN. [Suspect]
     Active Substance: GABAPENTIN
     Indication: MUSCULOSKELETAL DISORDER
     Dosage: 1200 MG, DAILY (300 MG IN THE MORNING AND 900 MG AT NIGHT)
     Route: 048

REACTIONS (3)
  - Drug ineffective for unapproved indication [Unknown]
  - Intentional product misuse [Unknown]
  - Off label use [Unknown]
